FAERS Safety Report 19733718 (Version 1)
Quarter: 2021Q3

REPORT INFORMATION
  Report Type: Spontaneous
  Country: US (occurrence: US)
  Receive Date: 20210823
  Receipt Date: 20210823
  Transmission Date: 20211014
  Serious: No
  Sender: FDA-Public Use
  Company Number: US-ALLERGAN-2123254US

PATIENT
  Age: 63 Year
  Sex: Female
  Weight: 92.99 kg

DRUGS (5)
  1. OMEPRAZOLE. [Concomitant]
     Active Substance: OMEPRAZOLE
  2. TRAMADOL. [Concomitant]
     Active Substance: TRAMADOL
     Indication: PAIN
  3. NEURONTIN [Concomitant]
     Active Substance: GABAPENTIN
  4. CALCIUM [Concomitant]
     Active Substance: CALCIUM
  5. KETOROLAC [Suspect]
     Active Substance: KETOROLAC TROMETHAMINE
     Indication: PAIN IN EXTREMITY
     Dosage: UNK UNK, SINGLE
     Route: 065
     Dates: start: 20210611, end: 20210611

REACTIONS (1)
  - Expired product administered [Unknown]

NARRATIVE: CASE EVENT DATE: 20210611
